FAERS Safety Report 9257738 (Version 1)
Quarter: 2013Q2

REPORT INFORMATION
  Report Type: Report from Study
  Country: JP (occurrence: JP)
  Receive Date: 20130426
  Receipt Date: 20130426
  Transmission Date: 20140414
  Serious: Yes (Hospitalization)
  Sender: FDA-Public Use
  Company Number: JP-SANOFI-AVENTIS-2013SA040811

PATIENT
  Age: 63 Year
  Sex: Female
  Weight: 48.6 kg

DRUGS (22)
  1. HYDROXYCHLOROQUINE SULFATE [Suspect]
     Indication: PRODUCT USED FOR UNKNOWN INDICATION
     Route: 048
     Dates: start: 20121227, end: 20130130
  2. HYDROXYCHLOROQUINE SULFATE [Suspect]
     Indication: PRODUCT USED FOR UNKNOWN INDICATION
     Route: 048
     Dates: start: 20121206, end: 20121226
  3. HYDROXYCHLOROQUINE SULFATE [Suspect]
     Indication: PRODUCT USED FOR UNKNOWN INDICATION
     Route: 048
     Dates: start: 20121108, end: 20121205
  4. HYDROXYCHLOROQUINE SULFATE [Suspect]
     Indication: PRODUCT USED FOR UNKNOWN INDICATION
     Route: 048
     Dates: start: 20121011, end: 20121107
  5. HYDROXYCHLOROQUINE SULFATE [Suspect]
     Indication: PRODUCT USED FOR UNKNOWN INDICATION
     Route: 048
     Dates: start: 20120920, end: 20121010
  6. HYDROXYCHLOROQUINE SULFATE [Suspect]
     Indication: PRODUCT USED FOR UNKNOWN INDICATION
     Route: 048
     Dates: start: 20120823, end: 20120919
  7. HYDROXYCHLOROQUINE SULFATE [Suspect]
     Indication: PRODUCT USED FOR UNKNOWN INDICATION
     Route: 048
     Dates: start: 20120718, end: 20120822
  8. HYDROXYCHLOROQUINE SULFATE [Suspect]
     Indication: PRODUCT USED FOR UNKNOWN INDICATION
     Route: 065
     Dates: end: 20130208
  9. PREDNISOLONE [Concomitant]
     Indication: SYSTEMIC LUPUS ERYTHEMATOSUS
     Route: 048
     Dates: start: 20120210, end: 20130210
  10. MICARDIS [Concomitant]
     Indication: HYPERTENSION
     Route: 048
     Dates: start: 199009, end: 20130210
  11. ACTONEL [Concomitant]
     Indication: OSTEOPOROSIS
     Route: 048
     Dates: start: 199009, end: 20130210
  12. HIRUDOID [Concomitant]
     Indication: DRY SKIN PROPHYLAXIS
     Route: 061
     Dates: start: 200509, end: 20130210
  13. ALL OTHER THERAPEUTIC PRODUCTS [Concomitant]
     Indication: MALAISE
     Route: 048
     Dates: start: 199009, end: 20130210
  14. BENOXIL [Concomitant]
     Indication: ADJUVANT THERAPY
     Route: 061
     Dates: start: 20120717, end: 20120717
  15. BENOXIL [Concomitant]
     Indication: ADJUVANT THERAPY
     Route: 061
     Dates: start: 20121107, end: 20121107
  16. MYDRIN P [Concomitant]
     Indication: ADJUVANT THERAPY
     Route: 061
     Dates: start: 20120717, end: 20120717
  17. MYDRIN P [Concomitant]
     Indication: ADJUVANT THERAPY
     Route: 061
     Dates: start: 20121107, end: 20121107
  18. LOXONIN [Concomitant]
     Indication: PAIN
     Route: 048
     Dates: start: 200508, end: 20130210
  19. LOXONIN [Concomitant]
     Indication: PYREXIA
     Route: 048
     Dates: start: 200508, end: 20130210
  20. TOUKISHAKUYAKUSAN [Concomitant]
     Indication: DRUG THERAPY
     Route: 048
     Dates: start: 20120428, end: 20120728
  21. ALL OTHER THERAPEUTIC PRODUCTS [Concomitant]
     Indication: DRUG THERAPY
     Route: 048
     Dates: start: 20120428, end: 20120728
  22. POVIDONE IODINE [Concomitant]
     Indication: DENTAL DISORDER PROPHYLAXIS
     Route: 031
     Dates: start: 2009, end: 20130210

REACTIONS (1)
  - Meningitis [Recovered/Resolved with Sequelae]
